FAERS Safety Report 19061987 (Version 3)
Quarter: 2021Q2

REPORT INFORMATION
  Report Type: Spontaneous
  Country: JP (occurrence: JP)
  Receive Date: 20210325
  Receipt Date: 20210531
  Transmission Date: 20210717
  Serious: Yes (Disabling)
  Sender: FDA-Public Use
  Company Number: JP-BAXTER-2021BAX005937

PATIENT
  Age: 61 Year
  Sex: Female
  Weight: 49.8 kg

DRUGS (3)
  1. DOXIL [Suspect]
     Active Substance: DOXORUBICIN HYDROCHLORIDE
     Indication: ENDOTHELIOMATOSIS
     Dosage: 1.4286 MG/M2
     Route: 041
     Dates: start: 20181213, end: 20190308
  2. ERIBULIN MESILATE [Concomitant]
     Active Substance: ERIBULIN
     Indication: ENDOTHELIOMATOSIS
     Route: 065
  3. TS?1 [Concomitant]
     Active Substance: GIMERACIL\OTERACIL\TEGAFUR
     Indication: ENDOTHELIOMATOSIS
     Dosage: DOSE UNKNOWN
     Route: 065

REACTIONS (1)
  - Pneumonitis [Recovered/Resolved]

NARRATIVE: CASE EVENT DATE: 20190405
